FAERS Safety Report 7546121-6 (Version None)
Quarter: 2011Q2

REPORT INFORMATION
  Report Type: 
  Country: None (occurrence: None)
  Receive Date: 20110607
  Receipt Date: 20110523
  Transmission Date: 20111010
  Serious: Yes (Death)
  Sender: FDA-Public Use
  Company Number: 1000020072

PATIENT
  Age: 82 Year
  Sex: Male
  Weight: 76 kg

DRUGS (7)
  1. EUPHYLONG (THEOPHYLLINE) (THEOPHYLLINE) [Concomitant]
  2. RAMIPRIL [Concomitant]
  3. SYMBICORT (BUDESONIDE, FORMOTEROL FUMARATE) (BUDESONIDE, FORMOTEROL FU [Concomitant]
  4. SPIRIVA [Concomitant]
  5. TORASEMIDE (TORASEMIDE) (TORASEMIDE) [Concomitant]
  6. ROFLUMILAST (ROFLUMILAST) (TABLETS) [Suspect]
     Indication: CHRONIC OBSTRUCTIVE PULMONARY DISEASE
     Dosage: 500 MCG (500 MCG, 1 IN 1 D), ORAL
     Route: 048
     Dates: start: 20110207
  7. LEVOTHYROXINE SODIUM [Concomitant]

REACTIONS (2)
  - CARDIAC FAILURE [None]
  - DISEASE PROGRESSION [None]
